FAERS Safety Report 11269597 (Version 1)
Quarter: 2015Q3

REPORT INFORMATION
  Report Type: Spontaneous
  Country: GB (occurrence: None)
  Receive Date: 20150710
  Receipt Date: 20150710
  Transmission Date: 20151125
  Serious: Yes (Life-Threatening, Hospitalization)
  Sender: FDA-Public Use
  Company Number: GB-HG14001-15-01020

PATIENT
  Age: 3 Year
  Sex: Male
  Weight: 17.5 kg

DRUGS (16)
  1. CHLORPHENAMINE [Concomitant]
     Active Substance: CHLORPHENIRAMINE MALEATE
  2. VANCOMYCIN (VANCOMYCIN) (UNKNOWN) (VANCOMYCIN) [Suspect]
     Active Substance: VANCOMYCIN
     Indication: SEPSIS
     Dosage: 15 MG/KG, 3 IN 1 D) (NOT OTHERWISE SPECIFIED)
     Route: 042
     Dates: start: 20150515
  3. PIPERACILLIN AND TAZOBACTAM (PIP/TAZO0 ( UNKNOWN) (PIPERACILLIN SODIUM, TAZOBACTAM SODIUM) [Concomitant]
  4. TEICOPLANIN [Concomitant]
     Active Substance: TEICOPLANIN
  5. CO-TRIMOXAZOLE (BACTRIM) (UNKNOWN) (SULFAMETHOXAZOLE, TRIMETHOPRIM) [Concomitant]
  6. CYCLOPHOSPHAMIDE. [Concomitant]
     Active Substance: CYCLOPHOSPHAMIDE
  7. AMOXICILLIAN [Concomitant]
  8. AZITHROMYCIN [Concomitant]
     Active Substance: AZITHROMYCIN ANHYDROUS
  9. CYTARABINE. [Concomitant]
     Active Substance: CYTARABINE
  10. PARACETAMOL [Concomitant]
     Active Substance: ACETAMINOPHEN
  11. VINCRISTINE [Concomitant]
     Active Substance: VINCRISTINE
  12. MERCAPTOPURINE. [Concomitant]
     Active Substance: MERCAPTOPURINE
  13. METHOTREXATE [Concomitant]
     Active Substance: METHOTREXATE
  14. ONDANSETRON [Concomitant]
     Active Substance: ONDANSETRON
  15. PEGASPARGASE [Concomitant]
     Active Substance: PEGASPARGASE
  16. CRISANTASPASE (ALL OTHER THERAPEUTIC PRODUCTS) [Concomitant]

REACTIONS (2)
  - Acute kidney injury [None]
  - Cellulitis [None]

NARRATIVE: CASE EVENT DATE: 20150517
